FAERS Safety Report 7423762-8 (Version None)
Quarter: 2011Q2

REPORT INFORMATION
  Report Type: 
  Country: None (occurrence: None)
  Receive Date: 20110414
  Receipt Date: 20110414
  Transmission Date: 20111010
  Serious: Yes (Other)
  Sender: FDA-Public Use
  Company Number: None

PATIENT
  Sex: Male
  Weight: 95.2554 kg

DRUGS (1)
  1. SINEMET [Suspect]
     Indication: PARKINSON'S DISEASE
     Dosage: 25/100 EVERY SIX HOURS PO
     Route: 048

REACTIONS (2)
  - HEADACHE [None]
  - PRODUCT SUBSTITUTION ISSUE [None]
